FAERS Safety Report 24318136 (Version 1)
Quarter: 2024Q3

REPORT INFORMATION
  Report Type: Spontaneous
  Country: KR (occurrence: KR)
  Receive Date: 20240913
  Receipt Date: 20240913
  Transmission Date: 20241017
  Serious: Yes (Other)
  Sender: Unknown Manufacturer
  Company Number: KR-CORZA MEDICAL GMBH-2024-KR-002263

PATIENT
  Age: 60 Year
  Sex: Male

DRUGS (1)
  1. TACHOCOMB [Suspect]
     Active Substance: FIBRINOGEN HUMAN\THROMBIN HUMAN
     Indication: Spinal decompression
     Dosage: UNK
     Route: 065

REACTIONS (3)
  - Cerebrospinal fluid leakage [Unknown]
  - Intervertebral disc protrusion [Unknown]
  - Dural tear [Unknown]
